FAERS Safety Report 4932682-X (Version None)
Quarter: 2006Q1

REPORT INFORMATION
  Report Type: 
  Country: None (occurrence: None)
  Receive Date: 20060301
  Receipt Date: 20060220
  Transmission Date: 20060701
  Serious: Yes (Hospitalization, Other)
  Sender: FDA-Public Use
  Company Number: 200610744GDS

PATIENT
  Age: 64 Year
  Sex: Male

DRUGS (2)
  1. ADIRO 100 (ACETYLSALICYLIC ACID) [Suspect]
     Indication: ACUTE MYOCARDIAL INFARCTION
     Dosage: 100 MG QD ORAL
     Route: 048
     Dates: start: 20050925, end: 20051010
  2. PLAVIX [Suspect]
     Indication: ACUTE MYOCARDIAL INFARCTION
     Dosage: 75 MG TOTAL DAILY ORAL
     Route: 048
     Dates: start: 20050925, end: 20051010

REACTIONS (1)
  - COLITIS ISCHAEMIC [None]
